FAERS Safety Report 7656285-1 (Version None)
Quarter: 2011Q3

REPORT INFORMATION
  Report Type: 
  Country: None (occurrence: None)
  Receive Date: 20110804
  Receipt Date: 20110722
  Transmission Date: 20111222
  Serious: Yes (Death)
  Sender: FDA-Public Use
  Company Number: CA-SANOFI-AVENTIS-2011SA048195

PATIENT
  Age: 79 Year
  Sex: Male
  Weight: 70 kg

DRUGS (15)
  1. ASPIRIN [Concomitant]
     Route: 065
  2. ADALAT CC [Concomitant]
     Route: 065
  3. WARFARIN SODIUM [Concomitant]
     Route: 065
  4. SPIRIVA [Concomitant]
     Route: 048
  5. PANTOPRAZOLE [Concomitant]
     Route: 065
     Dates: start: 20101222
  6. IMDUR [Concomitant]
     Route: 065
  7. FINASTERIDE [Concomitant]
     Route: 065
  8. NIFEDIPINE [Concomitant]
     Route: 065
  9. DRONEDARONE HCL [Suspect]
     Indication: ATRIAL FIBRILLATION
     Route: 048
     Dates: start: 20101222
  10. CODEINE CONTIN [Concomitant]
     Route: 065
  11. ROSUVASTATIN [Concomitant]
     Route: 065
  12. TAMSULOSIN HYDROCHLORIDE [Concomitant]
     Route: 065
  13. METFORMIN HCL [Concomitant]
     Route: 065
  14. FUROSEMIDE [Concomitant]
     Route: 065
  15. DILTIAZEM [Concomitant]
     Route: 065

REACTIONS (1)
  - DEATH [None]
